FAERS Safety Report 10501741 (Version 2)
Quarter: 2014Q4

REPORT INFORMATION
  Report Type: Spontaneous
  Country: US (occurrence: US)
  Receive Date: 20141007
  Receipt Date: 20141025
  Transmission Date: 20150528
  Serious: Yes (Other)
  Sender: FDA-Public Use
  Company Number: US-009507513-1410USA002273

PATIENT

DRUGS (1)
  1. KEYTRUDA [Suspect]
     Active Substance: PEMBROLIZUMAB
     Dosage: ONE DOSE
     Dates: start: 201409

REACTIONS (1)
  - Brain oedema [Unknown]

NARRATIVE: CASE EVENT DATE: 2014
